FAERS Safety Report 20838090 (Version 3)
Quarter: 2022Q3

REPORT INFORMATION
  Report Type: Report from Study
  Country: CA (occurrence: CA)
  Receive Date: 20220517
  Receipt Date: 20220726
  Transmission Date: 20221027
  Serious: Yes (Death, Hospitalization, Other)
  Sender: FDA-Public Use
  Company Number: CA-BRISTOL-MYERS SQUIBB COMPANY-2022-027636

PATIENT
  Age: 75 Year
  Sex: Male

DRUGS (1)
  1. REVLIMID [Suspect]
     Active Substance: LENALIDOMIDE
     Indication: Plasma cell myeloma
     Dosage: 21 CAPS/21 DAYS SUPPLY
     Route: 048
     Dates: start: 20220317

REACTIONS (8)
  - Death [Fatal]
  - Hip fracture [Unknown]
  - Sepsis [Recovering/Resolving]
  - Arthropathy [Unknown]
  - Clostridium difficile infection [Unknown]
  - Confusional state [Unknown]
  - Fall [Unknown]
  - Pyrexia [Recovering/Resolving]

NARRATIVE: CASE EVENT DATE: 20220329
